FAERS Safety Report 22381649 (Version 1)
Quarter: 2023Q2

REPORT INFORMATION
  Report Type: Report from Study
  Country: IT (occurrence: IT)
  Receive Date: 20230530
  Receipt Date: 20230530
  Transmission Date: 20230722
  Serious: Yes (Hospitalization, Other)
  Sender: FDA-Public Use
  Company Number: None

PATIENT
  Age: 9 Year
  Sex: Male
  Weight: 44 kg

DRUGS (3)
  1. DOXORUBICIN [Suspect]
     Active Substance: DOXORUBICIN
     Indication: Ewing^s sarcoma
     Dosage: CYCLIC THERAPY. 50 MG
     Route: 042
     Dates: start: 20220318, end: 20220719
  2. CYCLOPHOSPHAMIDE [Suspect]
     Active Substance: CYCLOPHOSPHAMIDE
     Dosage: CYCLIC THERAPY. 1570 MG.
     Route: 042
     Dates: start: 20220318, end: 20220719
  3. VINCRISTINE [Suspect]
     Active Substance: VINCRISTINE
     Dosage: CYCLIC THERAPY. 2 MG
     Route: 065
     Dates: start: 20220318, end: 20220719

REACTIONS (2)
  - Febrile neutropenia [Recovered/Resolved]
  - Mucosal inflammation [Recovering/Resolving]

NARRATIVE: CASE EVENT DATE: 20220327
